FAERS Safety Report 7487587-X (Version None)
Quarter: 2011Q2

REPORT INFORMATION
  Report Type: 
  Country: None (occurrence: None)
  Receive Date: 20110518
  Receipt Date: 20110511
  Transmission Date: 20111010
  Serious: Yes (Hospitalization, Other)
  Sender: FDA-Public Use
  Company Number: DE-ELI_LILLY_AND_COMPANY-DE201101005130

PATIENT
  Sex: Male

DRUGS (11)
  1. LEVOFLOXACIN [Concomitant]
     Indication: LEUKOPENIA
  2. PANTOPRAZOLE [Concomitant]
     Dosage: UNK, UNKNOWN
     Route: 065
  3. ALDACTONE [Concomitant]
     Dosage: 25 MG, QD
     Route: 065
  4. SYMBICORT [Concomitant]
     Dosage: 320/9 UNK, BID
     Route: 065
  5. SPIRIVA [Concomitant]
     Dosage: 18 UG, QD
     Dates: start: 20101001
  6. METFORMIN HCL [Concomitant]
     Dosage: 850 MG, BID
  7. GEMZAR [Suspect]
     Indication: PANCREATIC CARCINOMA
     Dosage: UNK
     Dates: start: 20101001, end: 20110301
  8. BISOPROLOL FUMARATE [Concomitant]
     Dosage: 5 MG, QD
  9. TORSEMIDE [Concomitant]
     Dosage: UNK, UNKNOWN
     Route: 065
  10. RAMIPRIL [Concomitant]
     Dosage: 5 MG, QD
     Route: 065
  11. AMLODIPINE BESYLATE [Concomitant]
     Dosage: 5 MG, BID
     Route: 065

REACTIONS (10)
  - OEDEMA PERIPHERAL [None]
  - DYSPNOEA [None]
  - SUICIDAL IDEATION [None]
  - APHONIA [None]
  - SLEEP DISORDER [None]
  - PULMONARY TOXICITY [None]
  - DEPRESSION [None]
  - CAPILLARY LEAK SYNDROME [None]
  - CONDITION AGGRAVATED [None]
  - WEIGHT DECREASED [None]
